FAERS Safety Report 12193632 (Version 1)
Quarter: 2016Q1

REPORT INFORMATION
  Report Type: Report from Study
  Country: US (occurrence: US)
  Receive Date: 20160321
  Receipt Date: 20160321
  Transmission Date: 20160526
  Serious: Yes (Other)
  Sender: FDA-Public Use
  Company Number: US-ROCHE-1728668

PATIENT

DRUGS (5)
  1. ALEMTUZUMAB [Suspect]
     Active Substance: ALEMTUZUMAB
     Dosage: DAY 3 OF CYCLE 1
     Route: 058
  2. RITUXIMAB [Suspect]
     Active Substance: RITUXIMAB
     Indication: CHRONIC LYMPHOCYTIC LEUKAEMIA
     Dosage: ARM A: STARTING ON DAY 8 OF CYCLE 1 AND CONTINUED WEEKLY.
     Route: 042
  3. ALEMTUZUMAB [Suspect]
     Active Substance: ALEMTUZUMAB
     Indication: CHRONIC LYMPHOCYTIC LEUKAEMIA
     Dosage: DAY 1: WEDNESDAY
     Route: 058
  4. RITUXIMAB [Suspect]
     Active Substance: RITUXIMAB
     Dosage: ARM B: RECEIVED RITUXIMAB ON MONDAY, WEDNESDAY AND FRIDAY STARTING ON DAY 6 OF CYCLE 1.
     Route: 042
  5. ALEMTUZUMAB [Suspect]
     Active Substance: ALEMTUZUMAB
     Dosage: DAY 2
     Route: 058

REACTIONS (13)
  - Hyponatraemia [Unknown]
  - Febrile neutropenia [Unknown]
  - Thrombocytopenia [Unknown]
  - Lipase increased [Unknown]
  - Neutropenia [Unknown]
  - Tooth infection [Unknown]
  - Mucosal inflammation [Unknown]
  - Fatigue [Unknown]
  - Rash [Unknown]
  - Serum sickness [Unknown]
  - Anaemia [Unknown]
  - Lung infection [Unknown]
  - Weight decreased [Unknown]
